FAERS Safety Report 16330420 (Version 4)
Quarter: 2020Q1

REPORT INFORMATION
  Report Type: Spontaneous
  Country: HU (occurrence: HU)
  Receive Date: 20190520
  Receipt Date: 20200217
  Transmission Date: 20200409
  Serious: Yes (Death, Hospitalization)
  Sender: FDA-Public Use
  Company Number: HU-ROCHE-2318020

PATIENT
  Age: 18 Year
  Sex: Female
  Weight: 91 kg

DRUGS (8)
  1. PROGRAF [Suspect]
     Active Substance: TACROLIMUS
     Indication: HEART TRANSPLANT
     Dosage: TRIPLE DOSE, UNKNOWN FREQUENCY
     Route: 065
  2. PROGRAF [Suspect]
     Active Substance: TACROLIMUS
     Dosage: 1.5-1.0 MG, TWICE DAILY (MORNING AND EVENING)
     Route: 048
     Dates: start: 20110101
  3. NIKORAN [Concomitant]
     Indication: PRODUCT USED FOR UNKNOWN INDICATION
     Dosage: UNK UNK, UNKNOWN FREQ.
     Route: 065
  4. CELLCEPT [Suspect]
     Active Substance: MYCOPHENOLATE MOFETIL\MYCOPHENOLATE MOFETIL HYDROCHLORIDE
     Indication: PROPHYLAXIS AGAINST TRANSPLANT REJECTION
     Dosage: UNK UNK, UNKNOWN FREQ.
     Route: 065
  5. PROGRAF [Suspect]
     Active Substance: TACROLIMUS
     Indication: HEART TRANSPLANT
     Dosage: 1.5 MG IN MORNING AND 1 MG IN EVENING
     Route: 048
     Dates: start: 20110101
  6. PROGRAF [Suspect]
     Active Substance: TACROLIMUS
     Dosage: TRIPLE DOSE, UNKNOWN FREQUENCY
     Route: 065
  7. LISONORM [Concomitant]
     Active Substance: AMLODIPINE BESYLATE\LISINOPRIL
     Indication: HYPERTENSION
     Dosage: UNK UNK, UNKNOWN FREQ.
     Route: 065
  8. METOPROLOL. [Concomitant]
     Active Substance: METOPROLOL
     Indication: HYPERTENSION
     Dosage: UNK UNK, UNKNOWN FREQ.
     Route: 065

REACTIONS (11)
  - Immunosuppressant drug level decreased [Recovered/Resolved]
  - Cardiopulmonary failure [Fatal]
  - Treatment noncompliance [Unknown]
  - Cough [Unknown]
  - Cardiac failure [Fatal]
  - Circulatory collapse [Fatal]
  - Congestive cardiomyopathy [Fatal]
  - Heart transplant rejection [Fatal]
  - Abortion spontaneous [Unknown]
  - Maternal exposure during pregnancy [Unknown]
  - Intentional product misuse [Unknown]

NARRATIVE: CASE EVENT DATE: 201512
